FAERS Safety Report 8394683-1 (Version None)
Quarter: 2012Q2

REPORT INFORMATION
  Report Type: 
  Country: None (occurrence: None)
  Receive Date: 20120529
  Receipt Date: 20120529
  Transmission Date: 20120825
  Serious: Yes (Other)
  Sender: FDA-Public Use
  Company Number: None

PATIENT
  Age: 65 Year
  Sex: Female
  Weight: 60.3284 kg

DRUGS (2)
  1. GRALISE [Suspect]
     Indication: PAIN
     Dosage: VARIES PO
     Route: 048
     Dates: start: 20120503, end: 20120503
  2. GRALISE [Suspect]
     Indication: NEUROPATHY PERIPHERAL
     Dosage: VARIES PO
     Route: 048
     Dates: start: 20120503, end: 20120503

REACTIONS (4)
  - DIZZINESS [None]
  - URTICARIA [None]
  - DISCOMFORT [None]
  - BLOOD URINE PRESENT [None]
